FAERS Safety Report 9701516 (Version 1)
Quarter: 2013Q4

REPORT INFORMATION
  Report Type: Spontaneous
  Country: US (occurrence: US)
  Receive Date: 20131121
  Receipt Date: 20131121
  Transmission Date: 20140711
  Serious: No
  Sender: FDA-Public Use
  Company Number: US-JNJFOC-20131104519

PATIENT
  Sex: Female

DRUGS (2)
  1. INVEGA SUSTENNA [Suspect]
     Indication: PRODUCT USED FOR UNKNOWN INDICATION
     Route: 030
  2. BROMOCRIPTINE [Suspect]
     Indication: BLOOD PROLACTIN INCREASED
     Route: 065

REACTIONS (2)
  - Psychotic disorder [Unknown]
  - Blood prolactin increased [Unknown]
